FAERS Safety Report 7306781-1 (Version None)
Quarter: 2011Q1

REPORT INFORMATION
  Report Type: 
  Country: None (occurrence: None)
  Receive Date: 20110222
  Receipt Date: 20110208
  Transmission Date: 20110831
  Serious: Yes (Other)
  Sender: FDA-Public Use
  Company Number: US-MYLANLABS-2011S1002930

PATIENT
  Age: 15 Year
  Sex: Female

DRUGS (5)
  1. SERTRALINE HYDROCHLORIDE [Concomitant]
     Route: 065
  2. DULOXETINE [Concomitant]
     Route: 065
  3. HYDROXYZINE [Suspect]
     Indication: ANXIETY
     Dosage: AS NEEDED.
     Route: 048
  4. BENADRYL [Suspect]
     Route: 030
  5. HYDROXYZINE [Suspect]
     Dosage: AS NEEDED.
     Route: 048

REACTIONS (2)
  - DRUG WITHDRAWAL SYNDROME [None]
  - DRUG DEPENDENCE [None]
